FAERS Safety Report 8431390-0 (Version None)
Quarter: 2012Q2

REPORT INFORMATION
  Report Type: 
  Country: None (occurrence: None)
  Receive Date: 20120613
  Receipt Date: 20120609
  Transmission Date: 20120825
  Serious: No
  Sender: FDA-Public Use
  Company Number: US-PFIZER INC-2012138877

PATIENT
  Sex: Female
  Weight: 49.887 kg

DRUGS (1)
  1. NITROSTAT [Suspect]
     Indication: MYOCARDIAL INFARCTION
     Dosage: 2.8 MG AT ONE TIME
     Route: 060
     Dates: start: 20120605

REACTIONS (1)
  - DRUG INEFFECTIVE [None]
